FAERS Safety Report 6042388-4 (Version None)
Quarter: 2009Q1

REPORT INFORMATION
  Report Type: 
  Country: None (occurrence: None)
  Receive Date: 20090116
  Receipt Date: 20090106
  Transmission Date: 20090719
  Serious: Yes (Other)
  Sender: FDA-Public Use
  Company Number: JP-SANOFI-SYNTHELABO-A01200900121

PATIENT
  Sex: Female

DRUGS (8)
  1. SILECE [Suspect]
     Indication: INSOMNIA
     Route: 065
     Dates: start: 20080908, end: 20081126
  2. LENDORMIN D [Suspect]
     Indication: INSOMNIA
     Route: 065
     Dates: start: 20080808, end: 20081126
  3. MYSLEE [Suspect]
     Indication: INSOMNIA
     Route: 048
     Dates: start: 20061201, end: 20071218
  4. MYSLEE [Suspect]
     Route: 048
     Dates: start: 20080408, end: 20080526
  5. MYSLEE [Suspect]
     Route: 048
     Dates: start: 20081126, end: 20081219
  6. DEPAS [Suspect]
     Indication: INSOMNIA
     Route: 065
     Dates: start: 20070417, end: 20080408
  7. HALCION [Suspect]
     Indication: INSOMNIA
     Route: 065
     Dates: start: 20071218, end: 20080408
  8. LIPITOR [Suspect]
     Indication: DYSLIPIDAEMIA
     Route: 048
     Dates: start: 20060426

REACTIONS (2)
  - BLEPHAROSPASM [None]
  - EYELID PTOSIS [None]
